FAERS Safety Report 25523084 (Version 4)
Quarter: 2025Q3

REPORT INFORMATION
  Report Type: Report from Study
  Country: GB (occurrence: GB)
  Receive Date: 20250707
  Receipt Date: 20250825
  Transmission Date: 20251021
  Serious: Yes (Hospitalization, Other)
  Sender: UCB
  Company Number: GB-UCBSA-2025040736

PATIENT
  Sex: Female

DRUGS (1)
  1. CERTOLIZUMAB PEGOL [Suspect]
     Active Substance: CERTOLIZUMAB PEGOL
     Indication: Rheumatoid arthritis
     Dosage: 200 MILLIGRAM, EV 3 WEEKS (E21D)
     Route: 058

REACTIONS (7)
  - Clavicle fracture [Unknown]
  - Hip fracture [Unknown]
  - Surgery [Unknown]
  - Scapula fracture [Unknown]
  - Fall [Unknown]
  - Intentional dose omission [Unknown]
  - Urinary tract infection [Unknown]
